FAERS Safety Report 8284528-2 (Version None)
Quarter: 2012Q2

REPORT INFORMATION
  Report Type: 
  Country: None (occurrence: None)
  Receive Date: 20120413
  Receipt Date: 20120125
  Transmission Date: 20120825
  Serious: No
  Sender: FDA-Public Use
  Company Number: US-ASTRAZENECA-2011SE38179

PATIENT
  Age: 51 Year
  Sex: Male
  Weight: 81.6 kg

DRUGS (9)
  1. SEROQUEL XR [Suspect]
     Route: 048
     Dates: start: 20110101
  2. SEROQUEL XR [Suspect]
     Indication: BIPOLAR II DISORDER
     Dosage: 2 AND HALF 300MG TABLET, FREQUENCY DAILY, TOTAL DAILY DOSE OF 750MG
     Route: 048
     Dates: start: 20060101, end: 20110101
  3. SEROQUEL XR [Suspect]
     Route: 048
     Dates: start: 20110101
  4. ZOLOFT [Concomitant]
  5. PRILOSEC [Suspect]
     Route: 048
  6. XANAX [Concomitant]
     Dates: end: 20060101
  7. SEROQUEL XR [Suspect]
     Indication: ANXIETY
     Dosage: 2 AND HALF 300MG TABLET, FREQUENCY DAILY, TOTAL DAILY DOSE OF 750MG
     Route: 048
     Dates: start: 20060101, end: 20110101
  8. NEXIUM [Suspect]
     Route: 048
  9. CYMBALTA [Concomitant]

REACTIONS (7)
  - REGURGITATION [None]
  - DRUG DOSE OMISSION [None]
  - INSOMNIA [None]
  - DRUG INEFFECTIVE [None]
  - GASTROOESOPHAGEAL REFLUX DISEASE [None]
  - ANXIETY [None]
  - PAIN [None]
